FAERS Safety Report 8129577-X (Version None)
Quarter: 2012Q1

REPORT INFORMATION
  Report Type: 
  Country: None (occurrence: None)
  Receive Date: 20120210
  Receipt Date: 20110510
  Transmission Date: 20120608
  Serious: Yes (Hospitalization)
  Sender: FDA-Public Use
  Company Number: CA-GLAXOSMITHKLINE-A0936512A

PATIENT
  Sex: Female

DRUGS (4)
  1. XELODA [Concomitant]
     Dosage: 1650MG TWICE PER DAY
     Route: 048
  2. TYKERB [Suspect]
     Indication: BREAST CANCER METASTATIC
     Dosage: 1250MG PER DAY
     Route: 048
     Dates: start: 20110425, end: 20111101
  3. HYDROCHLOROTHIAZIDE [Concomitant]
     Dosage: 12.5MG PER DAY
     Route: 048
  4. EFFEXOR [Concomitant]

REACTIONS (5)
  - BRAIN OPERATION [None]
  - MEMORY IMPAIRMENT [None]
  - DIARRHOEA [None]
  - METASTASES TO CENTRAL NERVOUS SYSTEM [None]
  - BREAST CANCER METASTATIC [None]
